FAERS Safety Report 23304716 (Version 1)
Quarter: 2023Q4

REPORT INFORMATION
  Report Type: Spontaneous
  Country: PT (occurrence: GB)
  Receive Date: 20231218
  Receipt Date: 20231218
  Transmission Date: 20240110
  Serious: Yes (Other)
  Sender: FDA-Public Use
  Company Number: None

PATIENT
  Age: 53 Year
  Sex: Male

DRUGS (1)
  1. PACLITAXEL [Suspect]
     Active Substance: PACLITAXEL
     Indication: Laryngeal squamous cell carcinoma
     Dosage: CONCENTRATE FOR SOLUTION FOR INFUSION
     Dates: start: 20230609, end: 20230609

REACTIONS (5)
  - Rash [Recovered/Resolved]
  - Loss of consciousness [Recovered/Resolved]
  - Cyanosis [Recovered/Resolved]
  - Dyspnoea [Recovered/Resolved]
  - Hyporesponsive to stimuli [Recovered/Resolved]

NARRATIVE: CASE EVENT DATE: 20230609
